FAERS Safety Report 7271037-2 (Version None)
Quarter: 2011Q1

REPORT INFORMATION
  Report Type: 
  Country: None (occurrence: None)
  Receive Date: 20110202
  Receipt Date: 20110117
  Transmission Date: 20110831
  Serious: Yes (Other)
  Sender: FDA-Public Use
  Company Number: DE-AMGEN-DEUCT2011003848

PATIENT
  Age: 66 Year
  Sex: Female

DRUGS (4)
  1. ETANERCEPT [Suspect]
     Indication: RHEUMATOID ARTHRITIS
     Dosage: 50 MG, QWK
     Dates: start: 20100401
  2. FOLIC ACID [Concomitant]
  3. ETANERCEPT [Suspect]
     Indication: POLYARTHRITIS
  4. MTX [Concomitant]
     Dosage: 15 MG, UNK
     Route: 058

REACTIONS (1)
  - RHEUMATOID ARTHRITIS [None]
